FAERS Safety Report 15466364 (Version 1)
Quarter: 2018Q4

REPORT INFORMATION
  Report Type: Spontaneous
  Country: US (occurrence: US)
  Receive Date: 20181004
  Receipt Date: 20181004
  Transmission Date: 20190204
  Serious: Yes (Hospitalization)
  Sender: FDA-Public Use
  Company Number: US-ACTELION-A-NJ2018-178554

PATIENT
  Age: 53 Year
  Sex: Female
  Weight: 104.31 kg

DRUGS (2)
  1. LETAIRIS [Concomitant]
     Active Substance: AMBRISENTAN
  2. VELETRI [Suspect]
     Active Substance: EPOPROSTENOL
     Indication: PULMONARY HYPERTENSION
     Dosage: 5 NG/KG, PER MIN
     Route: 042

REACTIONS (5)
  - Therapy change [Unknown]
  - Pain in extremity [Unknown]
  - Catheter site inflammation [Unknown]
  - Catheter site rash [Unknown]
  - Pain in jaw [Unknown]
